FAERS Safety Report 10079165 (Version 1)
Quarter: 2014Q2

REPORT INFORMATION
  Report Type: Spontaneous
  Country: US (occurrence: None)
  Receive Date: 20140414
  Receipt Date: 20140414
  Transmission Date: 20141212
  Serious: Yes (Other)
  Sender: FDA-Public Use
  Company Number: None

PATIENT
  Age: 90 Year
  Sex: Male

DRUGS (2)
  1. ZYTIGA [Suspect]
     Indication: PROSTATE CANCER
     Dosage: 4QD
     Route: 048
  2. ZYTIGA [Suspect]
     Indication: PROSTATE CANCER
     Dosage: 4QD
     Route: 048

REACTIONS (1)
  - Drug ineffective [None]
